FAERS Safety Report 5441843-5 (Version None)
Quarter: 2007Q3

REPORT INFORMATION
  Report Type: 
  Country: None (occurrence: None)
  Receive Date: 20070904
  Receipt Date: 20070827
  Transmission Date: 20080115
  Serious: Yes (Other)
  Sender: FDA-Public Use
  Company Number: US-ELI_LILLY_AND_COMPANY-US200708002745

PATIENT
  Age: 50 Year
  Sex: Female

DRUGS (7)
  1. CYMBALTA [Suspect]
     Dosage: 60 MG, UNK
     Dates: start: 20060505, end: 20070401
  2. DILAUDID [Concomitant]
  3. KLONOPIN [Concomitant]
  4. EFFEXOR [Concomitant]
     Dosage: 75 MG, DAILY (1/D)
     Dates: end: 20060501
  5. EFFEXOR [Concomitant]
     Dosage: 75 MG, UNK
     Dates: start: 20070401
  6. LIPITOR [Concomitant]
  7. ATENOLOL [Concomitant]

REACTIONS (2)
  - HEPATIC CIRRHOSIS [None]
  - HEPATIC FAILURE [None]
